FAERS Safety Report 7590699-3 (Version None)
Quarter: 2011Q3

REPORT INFORMATION
  Report Type: 
  Country: None (occurrence: None)
  Receive Date: 20110705
  Receipt Date: 20110627
  Transmission Date: 20111222
  Serious: Yes (Hospitalization, Other)
  Sender: FDA-Public Use
  Company Number: PL-PFIZER INC-2011138191

PATIENT
  Age: 26 Year
  Sex: Male
  Weight: 95 kg

DRUGS (3)
  1. SOLIAN [Concomitant]
     Dosage: UNK
     Dates: start: 20110501
  2. ZOLAFREN [Concomitant]
     Dosage: 5 MG, UNK
  3. ZIPRASIDONE HYDROCHLORIDE [Suspect]
     Indication: SCHIZOPHRENIA
     Dosage: 40 MG X 14
     Route: 048
     Dates: start: 20110601, end: 20110601

REACTIONS (13)
  - SKIN DISCOLOURATION [None]
  - VOMITING [None]
  - CONSTIPATION [None]
  - IMMUNODEFICIENCY [None]
  - MALAISE [None]
  - INSOMNIA [None]
  - CONFUSIONAL STATE [None]
  - BRONCHITIS [None]
  - DEPERSONALISATION [None]
  - DRY MOUTH [None]
  - ABDOMINAL DISTENSION [None]
  - URINARY RETENTION [None]
  - HEPATOMEGALY [None]
